FAERS Safety Report 25847617 (Version 1)
Quarter: 2025Q3

REPORT INFORMATION
  Report Type: Spontaneous
  Country: US (occurrence: US)
  Receive Date: 20250925
  Receipt Date: 20250925
  Transmission Date: 20251020
  Serious: No
  Sender: JOHNSON AND JOHNSON
  Company Number: US-JNJFOC-20250907190

PATIENT
  Age: 20 Year
  Sex: Female

DRUGS (1)
  1. DARZALEX [Suspect]
     Active Substance: DARATUMUMAB
     Indication: Product used for unknown indication
     Dates: start: 20250818

REACTIONS (5)
  - Infusion related reaction [Unknown]
  - Rhinorrhoea [Unknown]
  - Pruritus [Unknown]
  - Throat tightness [Unknown]
  - Vision blurred [Unknown]

NARRATIVE: CASE EVENT DATE: 20250818
